FAERS Safety Report 4533348-0 (Version None)
Quarter: 2004Q4

REPORT INFORMATION
  Report Type: 
  Country: None (occurrence: None)
  Receive Date: 20041206
  Receipt Date: 20041026
  Transmission Date: 20050328
  Serious: No
  Sender: FDA-Public Use
  Company Number: USA040876845

PATIENT
  Age: 50 Year
  Sex: Male
  Weight: 105 kg

DRUGS (10)
  1. CYMBALTA [Suspect]
     Indication: MAJOR DEPRESSION
     Dosage: 60 MG/1 DAY
     Dates: start: 20040825
  2. PROZAC [Suspect]
     Indication: DEPRESSION
     Dosage: 30 MG/1 DAY
  3. ZYPREXA [Suspect]
     Indication: SCHIZOAFFECTIVE DISORDER
     Dosage: 5 MG DAY
  4. FLUOXETINE [Concomitant]
  5. DEPAKOTE [Concomitant]
  6. KLONOPIN [Concomitant]
  7. AMBIEN [Concomitant]
  8. NAVANE [Concomitant]
  9. WELLBUTRIN [Concomitant]
  10. PREVACID [Concomitant]

REACTIONS (13)
  - ANXIETY [None]
  - BONE PAIN [None]
  - DRUG INEFFECTIVE [None]
  - ERECTILE DYSFUNCTION [None]
  - FEELING ABNORMAL [None]
  - INCREASED APPETITE [None]
  - INFLUENZA LIKE ILLNESS [None]
  - JOB DISSATISFACTION [None]
  - OBSESSIVE THOUGHTS [None]
  - PAIN [None]
  - SENSORY DISTURBANCE [None]
  - THINKING ABNORMAL [None]
  - WEIGHT INCREASED [None]
